FAERS Safety Report 9319648 (Version 2)
Quarter: 2014Q2

REPORT INFORMATION
  Report Type: Spontaneous
  Country: US (occurrence: US)
  Receive Date: 20130530
  Receipt Date: 20140530
  Transmission Date: 20141212
  Serious: No
  Sender: FDA-Public Use
  Company Number: US-GLAXOSMITHKLINE-A1019334A

PATIENT
  Sex: Female

DRUGS (4)
  1. FLOLAN [Suspect]
     Indication: COR PULMONALE CHRONIC
     Dosage: 17NGKM CONTINUOUS
     Route: 042
     Dates: start: 20121201
  2. TRACLEER [Suspect]
     Indication: PRODUCT USED FOR UNKNOWN INDICATION
     Route: 065
     Dates: start: 20131015
  3. WARFARIN [Concomitant]
  4. SILDENAFIL [Concomitant]

REACTIONS (7)
  - Catheter site pain [Unknown]
  - Rash [Unknown]
  - Pruritus [Unknown]
  - Nausea [Unknown]
  - Vomiting [Unknown]
  - Cough [Unknown]
  - Ill-defined disorder [Unknown]
